FAERS Safety Report 21026743 (Version 1)
Quarter: 2022Q2

REPORT INFORMATION
  Report Type: Spontaneous
  Country: US (occurrence: None)
  Receive Date: 20220629
  Receipt Date: 20220629
  Transmission Date: 20220721
  Serious: Yes (unspecified)
  Sender: FDA-Public Use
  Company Number: None

PATIENT
  Age: 6 Year
  Sex: Male
  Weight: 21.15 kg

DRUGS (2)
  1. AVOBENZONE\HOMOSALATE\OCTISALATE\OCTOCRYLENE [Suspect]
     Active Substance: AVOBENZONE\HOMOSALATE\OCTISALATE\OCTOCRYLENE
     Indication: Prophylaxis against solar radiation
     Dosage: OTHER STRENGTH : AS NEEDED;?FREQUENCY : AS NEEDED;?
     Route: 061
     Dates: start: 20220401, end: 20220628
  2. VITAMINS [Concomitant]
     Active Substance: VITAMINS

REACTIONS (4)
  - Eye contusion [None]
  - Application site swelling [None]
  - Accidental exposure to product [None]
  - Wrong technique in product usage process [None]

NARRATIVE: CASE EVENT DATE: 20220628
